FAERS Safety Report 4445508-8 (Version None)
Quarter: 2004Q3

REPORT INFORMATION
  Report Type: 
  Country: None (occurrence: None)
  Receive Date: 20040809
  Receipt Date: 20040408
  Transmission Date: 20050211
  Serious: Yes (Hospitalization, Other)
  Sender: FDA-Public Use
  Company Number: USA040360616

PATIENT
  Age: 83 Year
  Sex: Female
  Weight: 45 kg

DRUGS (19)
  1. EVISTA [Suspect]
     Indication: OSTEOPOROSIS
     Dosage: 20 UG/1 WEEK
     Dates: start: 20031101
  2. EVISTA [Suspect]
     Dosage: UNK
     Route: 065
  3. LASIX [Concomitant]
  4. COUMADIN [Concomitant]
  5. FOSAMAX [Concomitant]
  6. XOPENEX [Concomitant]
  7. XANAX [Concomitant]
  8. PROCRIT [Concomitant]
  9. SENNA [Concomitant]
  10. TRAVATAN (TRAVOPROST) [Concomitant]
  11. ALPHAGAN [Concomitant]
  12. OCUVITE [Concomitant]
  13. TYLENOL [Concomitant]
  14. MULTIVITAMIN [Concomitant]
  15. ASPIRIN [Concomitant]
  16. SYNTHROID [Concomitant]
  17. CALTRATE (CALCIUM CARBONATE) [Concomitant]
  18. COSOPT [Concomitant]
  19. HYTRIN [Concomitant]

REACTIONS (12)
  - ATRIAL FIBRILLATION [None]
  - BLOOD PRESSURE INCREASED [None]
  - CARDIAC DISORDER [None]
  - DIFFICULTY IN WALKING [None]
  - FATIGUE [None]
  - FLUID RETENTION [None]
  - LETHARGY [None]
  - PALPITATIONS [None]
  - SWELLING [None]
  - TACHYCARDIA [None]
  - URINARY TRACT INFECTION [None]
  - WEIGHT INCREASED [None]
